FAERS Safety Report 9551395 (Version 1)
Quarter: 2013Q3

REPORT INFORMATION
  Report Type: Spontaneous
  Country: US (occurrence: None)
  Receive Date: 20130724
  Receipt Date: 20130724
  Transmission Date: 20140515
  Serious: Yes (Other)
  Sender: FDA-Public Use
  Company Number: PHEH2012US018213

PATIENT
  Age: 82 Year
  Sex: Female

DRUGS (20)
  1. GLEEVEC (IMATINIB) UNKNOWN [Suspect]
     Indication: GASTROINTESTINAL STROMAL TUMOUR
     Dosage: 300 MG, DAILY, ORAL
     Route: 048
     Dates: start: 20120815
  2. ACTONEL (RISEDRONATE SODIUM) [Concomitant]
  3. AMLODIPINE (AMLODIPINE) [Concomitant]
  4. CALCIUM CARBONATE (CALCIUM CARBONATE) [Concomitant]
  5. COUMADIN (WARFARIN SODIUM) [Concomitant]
  6. FERGON (FERROUS GLUCONATE) [Concomitant]
  7. HYDROCODONE W/ACTAMINOPHEN (HYDROCODONE BITARTRATE, PARACETAMOL) CAPSULE [Concomitant]
  8. LEXAPRO (ESCITALOPRAM OXALATE) [Concomitant]
  9. MESALAMINE [Concomitant]
  10. MULTIVITAMINS (ASCORBIC ACID, ERGOCALCIFEROL, FOLIC ACID, NICOTINAMIDE, PANTHENOL, RETINAL, RIBOFLAVIN,THIAMINE HYDROCHLORIDE) [Concomitant]
  11. NEXIUM (ESOMEPRAZOLE MAGNESIUM) [Concomitant]
  12. POTASSIUM CHLORIDE (POTASSIUM CHLORIDE) [Concomitant]
  13. SYNTHROID (LEVOTHYROXINE SODIUM) [Concomitant]
  14. TRAVATAN Z (TRAVOPROST) DROPS, 0.004% DRP [Concomitant]
  15. TYLENOL (PARACETAMOL) [Concomitant]
  16. VITAMIN D3 (COLECALCIFEROL) [Concomitant]
  17. ZOFRAN (ONDANSETRON HYDROCHLORIDE) [Concomitant]
  18. ZOFRAN ZYDIS LINGUAL (ONDANSETRON) [Concomitant]
  19. VIDODIN (HYDROCODONE BITARTRATE, PARACETAMOL_ [Concomitant]
  20. POTASSIUM (POTASSIUM) [Concomitant]

REACTIONS (14)
  - Atrial fibrillation [None]
  - Haematemesis [None]
  - Skin disorder [None]
  - Pruritus [None]
  - Nausea [None]
  - Vomiting [None]
  - Musculoskeletal pain [None]
  - Back pain [None]
  - Anaemia [None]
  - Drug interaction [None]
  - Dehydration [None]
  - Chills [None]
  - Muscular weakness [None]
  - Myalgia [None]
